FAERS Safety Report 8454856-6 (Version None)
Quarter: 2012Q2

REPORT INFORMATION
  Report Type: 
  Country: None (occurrence: None)
  Receive Date: 20120621
  Receipt Date: 20120612
  Transmission Date: 20120825
  Serious: Yes (Disabling, Other)
  Sender: FDA-Public Use
  Company Number: ES-JNJFOC-20120606775

PATIENT
  Sex: Female
  Weight: 80 kg

DRUGS (1)
  1. STELARA [Suspect]
     Indication: PSORIASIS
     Route: 058
     Dates: start: 20100518

REACTIONS (1)
  - PSORIATIC ARTHROPATHY [None]
